FAERS Safety Report 5401928-6 (Version None)
Quarter: 2007Q3

REPORT INFORMATION
  Report Type: 
  Country: None (occurrence: None)
  Receive Date: 20070726
  Receipt Date: 20070713
  Transmission Date: 20080115
  Serious: Yes (Hospitalization)
  Sender: FDA-Public Use
  Company Number: 2006US000515

PATIENT
  Age: 60 Year
  Sex: Male

DRUGS (19)
  1. PROGRAF [Suspect]
     Indication: PROPHYLAXIS AGAINST TRANSPLANT REJECTION
     Dosage: 3 MG, BID, ORAL
     Route: 048
     Dates: start: 20050510
  2. MYCOPHENOLATE MOFETIL [Suspect]
     Indication: PROPHYLAXIS AGAINST TRANSPLANT REJECTION
     Dosage: 1 G, BID, ORAL
     Route: 048
     Dates: start: 20050510
  3. SOLU-MEDROL [Suspect]
     Indication: PROPHYLAXIS AGAINST TRANSPLANT REJECTION
     Dosage: 120 MG, ORAL
     Route: 048
     Dates: start: 20050510
  4. PROTONIX [Concomitant]
  5. NORVASC [Concomitant]
  6. TOPROL-XL [Concomitant]
  7. FLAGYL [Concomitant]
  8. NYSTATIN [Concomitant]
  9. SODIUM BICARBONATE IN PLASTIC CONTAINER [Concomitant]
  10. DIGOXIN [Concomitant]
  11. LANTUS [Concomitant]
  12. CALCIUM GLUCONATE [Concomitant]
  13. AMBIEN [Concomitant]
  14. HYDRALAZINE HCL [Concomitant]
  15. CARDIZEM [Concomitant]
  16. EPOGEN [Concomitant]
  17. LISINOPRIL [Concomitant]
  18. LANOXIN [Concomitant]
  19. K-PHOS (POTASSIUM PHOSPHATE MONOBASIC) [Concomitant]

REACTIONS (8)
  - ATRIAL FIBRILLATION [None]
  - ATRIAL FLUTTER [None]
  - ERYTHEMA [None]
  - FUNGAL INFECTION [None]
  - GRAFT DYSFUNCTION [None]
  - NODAL ARRHYTHMIA [None]
  - PYELONEPHRITIS [None]
  - SEPSIS [None]
